FAERS Safety Report 17559605 (Version 1)
Quarter: 2020Q1

REPORT INFORMATION
  Report Type: Spontaneous
  Country: US (occurrence: US)
  Receive Date: 20200319
  Receipt Date: 20200319
  Transmission Date: 20200409
  Serious: No
  Sender: FDA-Public Use
  Company Number: US-BAYER-2020-047387

PATIENT
  Age: 22 Year
  Sex: Female

DRUGS (1)
  1. MIRENA [Suspect]
     Active Substance: LEVONORGESTREL
     Indication: CONTRACEPTION
     Dosage: 20 ?G PER DAY CONT
     Route: 015
     Dates: start: 202002, end: 202002

REACTIONS (2)
  - Device expulsion [Recovered/Resolved]
  - Uterine spasm [None]

NARRATIVE: CASE EVENT DATE: 202002
